FAERS Safety Report 8085717 (Version 2)
Quarter: 2013Q2

REPORT INFORMATION
  Report Type: Report from Study
  Country: US (occurrence: US)
  Receive Date: 20110811
  Receipt Date: 20130627
  Transmission Date: 20140414
  Serious: Yes (Hospitalization, Other)
  Sender: FDA-Public Use
  Company Number: US-PFIZER INC-2011177583

PATIENT
  Age: 62 Year
  Sex: Female
  Weight: 59.86 kg

DRUGS (8)
  1. CADUET [Suspect]
     Indication: HYPERLIPIDAEMIA
     Dosage: 5MG/10MG,1X/DAY
     Route: 048
     Dates: start: 20090723
  2. ATACAND HCT [Suspect]
     Indication: HYPERTENSION
     Dosage: 12.5 MG, 1X/DAY (AS REPORTED)
     Route: 048
     Dates: start: 20090723
  3. PALMAZ GENESIS [Suspect]
     Dosage: UNK
  4. CELEXA [Concomitant]
     Dosage: UNK
  5. METOPROLOL [Concomitant]
     Dosage: UNK
  6. METOCLOPRAMIDE [Concomitant]
     Dosage: UNK
  7. ACETYLSALICYLIC ACID [Concomitant]
     Dosage: UNK
  8. RISPERIDONE [Concomitant]
     Dosage: UNK

REACTIONS (1)
  - Hypertensive crisis [Recovered/Resolved]
